FAERS Safety Report 7484297-X (Version None)
Quarter: 2011Q2

REPORT INFORMATION
  Report Type: 
  Country: None (occurrence: None)
  Receive Date: 20110517
  Receipt Date: 20101123
  Transmission Date: 20111010
  Serious: Yes (Hospitalization, Other)
  Sender: FDA-Public Use
  Company Number: US-BAYER-201038466NA

PATIENT
  Age: 41 Year
  Sex: Female
  Weight: 68 kg

DRUGS (5)
  1. IBUPROFEN [Concomitant]
     Indication: PAIN
     Dosage: UNK UNK, PRN
     Dates: start: 20050101
  2. YASMIN [Suspect]
     Indication: CONTRACEPTION
     Dates: start: 20030710, end: 20031201
  3. YASMIN [Suspect]
     Indication: PREMENSTRUAL SYNDROME
     Dosage: UNK
     Dates: start: 20070101, end: 20090201
  4. DROSPIRENONE AND ETHINYL ESTRADIOL [Suspect]
     Indication: ACNE
     Dosage: UNK
     Dates: start: 20050101, end: 20080101
  5. YAZ [Suspect]

REACTIONS (11)
  - CHOLECYSTITIS CHRONIC [None]
  - BACK PAIN [None]
  - BILIARY COLIC [None]
  - PANCREATITIS [None]
  - DYSPEPSIA [None]
  - ABDOMINAL DISCOMFORT [None]
  - BILE DUCT STONE [None]
  - CHOLELITHIASIS [None]
  - DEFAECATION URGENCY [None]
  - DECREASED APPETITE [None]
  - ABDOMINAL PAIN UPPER [None]
